FAERS Safety Report 4613229-4 (Version None)
Quarter: 2005Q1

REPORT INFORMATION
  Report Type: 
  Country: None (occurrence: None)
  Receive Date: 20050315
  Receipt Date: 20050302
  Transmission Date: 20050727
  Serious: Yes (Life-Threatening, Hospitalization, Other)
  Sender: FDA-Public Use
  Company Number: 2005040255

PATIENT
  Age: 50 Year
  Sex: Male

DRUGS (2)
  1. ZOLOFT [Suspect]
     Indication: DEPRESSION
     Dosage: 100 MG (50 MG, 1 IN 1 D)
  2. DIAZEPAM [Concomitant]

REACTIONS (9)
  - ALCOHOLIC [None]
  - CEREBRAL HAEMATOMA [None]
  - COMA [None]
  - FALL [None]
  - GRAND MAL CONVULSION [None]
  - PERSONALITY CHANGE [None]
  - RIB FRACTURE [None]
  - VITAL FUNCTIONS ABNORMAL [None]
  - VOMITING [None]
